FAERS Safety Report 15164344 (Version 1)
Quarter: 2018Q3

REPORT INFORMATION
  Report Type: Spontaneous
  Country: FR (occurrence: FR)
  Receive Date: 20180719
  Receipt Date: 20180719
  Transmission Date: 20181010
  Serious: Yes (Other)
  Sender: FDA-Public Use
  Company Number: FR-TEVA-2018-FR-843756

PATIENT
  Age: 54 Year
  Sex: Female

DRUGS (2)
  1. LEVOFLOXACINE TEVA 500 MG [Suspect]
     Active Substance: LEVOFLOXACIN
     Indication: RHINITIS
     Dosage: 1 DOSAGE FORMS DAILY;
     Route: 048
     Dates: start: 20171224, end: 20171229
  2. LEVOFLOXACINE TEVA 500 MG [Suspect]
     Active Substance: LEVOFLOXACIN
     Indication: CHRONIC SINUSITIS

REACTIONS (4)
  - Irritability [Unknown]
  - Fatigue [Unknown]
  - Vitreous floaters [Not Recovered/Not Resolved]
  - Vitreous detachment [Unknown]

NARRATIVE: CASE EVENT DATE: 201712
